FAERS Safety Report 17916862 (Version 2)
Quarter: 2020Q2

REPORT INFORMATION
  Report Type: Spontaneous
  Country: IN (occurrence: IN)
  Receive Date: 20200619
  Receipt Date: 20200630
  Transmission Date: 20200714
  Serious: Yes (Hospitalization)
  Sender: FDA-Public Use
  Company Number: IN-PFIZER INC-2019003146

PATIENT
  Age: 60 Year
  Sex: Male

DRUGS (5)
  1. SUTENT [Suspect]
     Active Substance: SUNITINIB MALATE
     Indication: METASTATIC RENAL CELL CARCINOMA
     Dosage: 50 MG, CYCLIC (ONCE A DAY 2 WEEKS ON AND 1 WEEK OFF)
     Route: 048
     Dates: start: 20181231
  2. MEGANEURON [CYANOCOBALAMIN;PYRIDOXINE HYDROCHLORIDE;THIAMINE HYDROCHLO [Concomitant]
     Dosage: UNK, 2X/DAY (BD)
  3. ESTRO [Concomitant]
     Active Substance: DIETARY SUPPLEMENT
     Dosage: UNK, 1X/DAY
  4. ONDEM [Concomitant]
     Dosage: UNK, AS NEEDED
  5. MEGESTRON [Concomitant]
     Active Substance: MEDROXYPROGESTERONE ACETATE
     Dosage: 160 MG, 2X/DAY

REACTIONS (4)
  - Tachypnoea [Unknown]
  - Gait inability [Unknown]
  - Haemoglobin decreased [Unknown]
  - Fatigue [Unknown]
